FAERS Safety Report 10749038 (Version 1)
Quarter: 2015Q1

REPORT INFORMATION
  Report Type: Report from Study
  Country: PE (occurrence: PE)
  Receive Date: 20150129
  Receipt Date: 20150129
  Transmission Date: 20150721
  Serious: Yes (Other)
  Sender: FDA-Public Use
  Company Number: PE-ASTRAZENECA-2015SE06912

PATIENT
  Age: 69 Year
  Sex: Female

DRUGS (1)
  1. BYETTA [Suspect]
     Active Substance: EXENATIDE
     Route: 058
     Dates: start: 20140710, end: 201410

REACTIONS (1)
  - Arrhythmia [Unknown]
